FAERS Safety Report 10362903 (Version 1)
Quarter: 2014Q3

REPORT INFORMATION
  Report Type: Other
  Country: GB (occurrence: GB)
  Receive Date: 20140805
  Receipt Date: 20140805
  Transmission Date: 20150326
  Serious: Yes (Hospitalization)
  Sender: FDA-Public Use
  Company Number: GB-SUN PHARMACEUTICAL INDUSTRIES LTD-2014SUN01719

PATIENT

DRUGS (10)
  1. SIMVASTATIN. [Concomitant]
     Active Substance: SIMVASTATIN
  2. LORAZEPAM. [Concomitant]
     Active Substance: LORAZEPAM
  3. OMEPRAZOLE. [Concomitant]
     Active Substance: OMEPRAZOLE
     Dosage: STOPPED
  4. ATENOLOL. [Concomitant]
     Active Substance: ATENOLOL
  5. MIRTAZAPINE. [Concomitant]
     Active Substance: MIRTAZAPINE
  6. VENLAFAXINE HYDROCHLORIDE 37.5MG TABLET [Suspect]
     Active Substance: VENLAFAXINE HYDROCHLORIDE
     Dosage: 35.4 UNK, UNK
     Route: 065
     Dates: end: 20140708
  7. DIAZEPAM. [Concomitant]
     Active Substance: DIAZEPAM
  8. LAXIDO [Concomitant]
     Active Substance: POLYETHYLENE GLYCOL 3350\POTASSIUM CHLORIDE\SODIUM BICARBONATE\SODIUM CHLORIDE
  9. VENLAFAXINE HYDROCHLORIDE 37.5MG TABLET [Suspect]
     Active Substance: VENLAFAXINE HYDROCHLORIDE
     Indication: PRODUCT USED FOR UNKNOWN INDICATION
     Dosage: STARTED AT 75MG REDUCED TO 35.4MG
     Route: 065
     Dates: start: 20140602
  10. AMLODIPINE [Concomitant]
     Active Substance: AMLODIPINE BESYLATE

REACTIONS (2)
  - Condition aggravated [Recovering/Resolving]
  - Blood sodium decreased [Recovering/Resolving]

NARRATIVE: CASE EVENT DATE: 20140707
